FAERS Safety Report 9046561 (Version 1)
Quarter: 2013Q1

REPORT INFORMATION
  Report Type: Spontaneous
  Country: US (occurrence: None)
  Receive Date: 20130128
  Receipt Date: 20130128
  Transmission Date: 20140127
  Serious: No
  Sender: FDA-Public Use
  Company Number: None

PATIENT
  Age: 48 Year
  Sex: Male
  Weight: 88.45 kg

DRUGS (1)
  1. NAROPIN [Suspect]

REACTIONS (33)
  - Dyspnoea [None]
  - Wheezing [None]
  - Swelling face [None]
  - Lip swelling [None]
  - Swollen tongue [None]
  - Headache [None]
  - Dizziness [None]
  - Abdominal discomfort [None]
  - Chest discomfort [None]
  - Pruritus [None]
  - Balance disorder [None]
  - Visual impairment [None]
  - Eye pain [None]
  - Irritability [None]
  - Asthenia [None]
  - Hypoaesthesia [None]
  - Paraesthesia [None]
  - Thinking abnormal [None]
  - Erythema [None]
  - Erythema [None]
  - Ear discomfort [None]
  - Feeling cold [None]
  - Deafness bilateral [None]
  - Pain in jaw [None]
  - Musculoskeletal pain [None]
  - Vision blurred [None]
  - Neck pain [None]
  - Injection site pain [None]
  - Muscular weakness [None]
  - Muscular weakness [None]
  - Grip strength decreased [None]
  - Tinnitus [None]
  - Ear discomfort [None]
